FAERS Safety Report 10349541 (Version 1)
Quarter: 2014Q3

REPORT INFORMATION
  Report Type: Spontaneous
  Country: FR (occurrence: None)
  Receive Date: 20140728
  Receipt Date: 20140728
  Transmission Date: 20150326
  Serious: Yes (Hospitalization)
  Sender: FDA-Public Use
  Company Number: AUR-APL-2014-07893

PATIENT
  Age: 89 Year
  Sex: Male

DRUGS (8)
  1. AMLODIPINE [Suspect]
     Active Substance: AMLODIPINE BESYLATE
     Indication: PRODUCT USED FOR UNKNOWN INDICATION
     Dosage: 5M ONCE A DAY ORAL
     Route: 048
     Dates: end: 20140118
  2. DISCOTRINE (GLYCERYL TRINITRATE) [Suspect]
     Active Substance: NITROGLYCERIN
     Indication: PRODUCT USED FOR UNKNOWN INDICATION
     Dosage: 1DF ONCE A DAY TRANSDERMAL
     Route: 062
     Dates: end: 20140120
  3. STALEVO (CARBIDOPA, ENTACAPONE, LEVODOPA) [Concomitant]
  4. BISOPROLOL 5MG (BISOPROLOL) UNKNOWN 5MG [Suspect]
     Active Substance: BISOPROLOL
     Indication: PRODUCT USED FOR UNKNOWN INDICATION
     Route: 048
     Dates: end: 20140121
  5. SIMVASTATIN (SIMVASTATIN) [Concomitant]
     Active Substance: SIMVASTATIN
  6. KARDEGIC (ACETYSALICYLATE LYSINE) [Concomitant]
  7. MOPRAL (OMEPRAZOLE SODIUM) [Concomitant]
     Active Substance: OMEPRAZOLE SODIUM
  8. LASILIX (FUROSEMIDE) [Suspect]
     Active Substance: FUROSEMIDE
     Indication: PRODUCT USED FOR UNKNOWN INDICATION
     Route: 048
     Dates: end: 20140121

REACTIONS (4)
  - Orthostatic hypotension [None]
  - Cerebral atrophy [None]
  - White matter lesion [None]
  - Fall [None]

NARRATIVE: CASE EVENT DATE: 20140117
